FAERS Safety Report 14852829 (Version 1)
Quarter: 2018Q2

REPORT INFORMATION
  Report Type: Spontaneous
  Country: GB (occurrence: GB)
  Receive Date: 20180507
  Receipt Date: 20180507
  Transmission Date: 20180711
  Serious: Yes (Other)
  Sender: FDA-Public Use
  Company Number: GB-009507513-1805GBR001928

PATIENT
  Sex: Female

DRUGS (2)
  1. ACCOLATE [Suspect]
     Active Substance: ZAFIRLUKAST
     Route: 048
  2. MONTELUKAST SODIUM. [Suspect]
     Active Substance: MONTELUKAST SODIUM
     Route: 048

REACTIONS (3)
  - Liver disorder [Unknown]
  - Adverse drug reaction [Unknown]
  - Anaphylactic shock [Unknown]
